FAERS Safety Report 9570089 (Version 2)
Quarter: 2013Q3

REPORT INFORMATION
  Report Type: Spontaneous
  Country: US (occurrence: US)
  Receive Date: 20130930
  Receipt Date: 20130930
  Transmission Date: 20140515
  Serious: No
  Sender: FDA-Public Use
  Company Number: US-AMGEN-USASP2013055269

PATIENT
  Age: 69 Year
  Sex: Female
  Weight: 85.26 kg

DRUGS (23)
  1. ENBREL [Suspect]
     Indication: PRODUCT USED FOR UNKNOWN INDICATION
     Dosage: 50 MG, QWK
     Route: 058
     Dates: start: 20130125, end: 20130531
  2. METHOTREXATE [Suspect]
     Indication: RHEUMATOID ARTHRITIS
     Dosage: 25 MG, QWK
     Route: 048
     Dates: start: 201112, end: 20130621
  3. MULTIVITAMINS, PLAIN [Concomitant]
     Dosage: UNK
  4. IRON [Concomitant]
     Dosage: UNK
  5. MIRAPEX [Concomitant]
     Dosage: 1 MG, UNK
  6. BONIVA [Concomitant]
     Dosage: 2.5 MG, UNK
  7. ASPIRIN (E.C.) [Concomitant]
     Dosage: 81 MG, UNK
  8. OMEGA-3                            /01866101/ [Concomitant]
     Dosage: UNK
  9. LOSARTAN                           /01121602/ [Concomitant]
     Dosage: 25 MG, UNK
  10. BENADRYL                           /00000402/ [Concomitant]
     Dosage: 25 MG, UNK
  11. CRESTOR [Concomitant]
     Dosage: 10 MG, UNK
  12. LEVOTHYROXIN [Concomitant]
     Dosage: 100 MCG UNK
  13. CITALOPRAM [Concomitant]
     Dosage: 10 MG, UNK
  14. ISOSORB                            /07346401/ [Concomitant]
     Dosage: 10 MG, UNK
  15. PANTOPRAZOLE                       /01263204/ [Concomitant]
     Dosage: 20 MG, UNK
  16. FOLIC ACID [Concomitant]
     Dosage: UNK
  17. PLAVIX [Concomitant]
     Dosage: 75 MG, UNK
  18. OSCAL 500 + D [Concomitant]
     Dosage: OSCAL 500/TAB200 D-3
  19. VITAMIN D                          /00107901/ [Concomitant]
     Dosage: 400 UNIT, UNK
  20. NIASPAN [Concomitant]
     Dosage: 1000 ER, UNK
  21. FENOFIBRATE [Concomitant]
     Dosage: 200 MG, UNK
  22. BUMETANIDE [Concomitant]
     Dosage: 0.25 ML, UNK
  23. HUMIRA [Concomitant]
     Dosage: 40 MG, UNK

REACTIONS (7)
  - Rales [Unknown]
  - Fluid retention [Unknown]
  - Joint swelling [Unknown]
  - Dyspnoea exertional [Recovered/Resolved]
  - Dyspnoea [Recovered/Resolved]
  - Nasopharyngitis [Unknown]
  - Upper respiratory tract infection [Unknown]
